FAERS Safety Report 8523319-1 (Version None)
Quarter: 2012Q3

REPORT INFORMATION
  Report Type: 
  Country: None (occurrence: None)
  Receive Date: 20120713
  Receipt Date: 20120713
  Transmission Date: 20120928
  Serious: No
  Sender: FDA-Public Use
  Company Number: None

PATIENT
  Sex: Female

DRUGS (1)
  1. NUTROPIN AQ [Suspect]
     Indication: UNDERWEIGHT
     Dosage: 2.4MG DAILY SQ
     Route: 058
     Dates: start: 20111128

REACTIONS (1)
  - GENITAL DISORDER FEMALE [None]
